FAERS Safety Report 7928061-3 (Version None)
Quarter: 2011Q4

REPORT INFORMATION
  Report Type: 
  Country: None (occurrence: None)
  Receive Date: 20111118
  Receipt Date: 20111110
  Transmission Date: 20120403
  Serious: Yes (Hospitalization)
  Sender: FDA-Public Use
  Company Number: US-GLAXOSMITHKLINE-A0877698A

PATIENT
  Age: 55 Year
  Sex: Female

DRUGS (2)
  1. AVANDAMET [Suspect]
     Indication: DIABETES MELLITUS
     Route: 048
     Dates: start: 20060101, end: 20070101
  2. AVANDIA [Suspect]
     Indication: TYPE 2 DIABETES MELLITUS
     Dosage: 4MG TWICE PER DAY
     Route: 048
     Dates: start: 20030101, end: 20060101

REACTIONS (7)
  - BLINDNESS UNILATERAL [None]
  - ARTERIAL OCCLUSIVE DISEASE [None]
  - CORONARY ARTERY BYPASS [None]
  - ISCHAEMIA [None]
  - PROCEDURAL PAIN [None]
  - PAIN IN EXTREMITY [None]
  - MACULAR OEDEMA [None]
